FAERS Safety Report 9341361 (Version 1)
Quarter: 2013Q2

REPORT INFORMATION
  Report Type: Spontaneous
  Country: US (occurrence: None)
  Receive Date: 20130610
  Receipt Date: 20130610
  Transmission Date: 20140414
  Serious: No
  Sender: FDA-Public Use
  Company Number: None

PATIENT
  Age: 52 Year
  Sex: Female
  Weight: 62.14 kg

DRUGS (5)
  1. LEVOXYL [Suspect]
     Dosage: STRENGTH: 88     ONCE DAILY AM  BY MOUTH
     Route: 048
     Dates: start: 20070601, end: 20130529
  2. TOPROL XL [Concomitant]
  3. FLOVENT [Concomitant]
  4. EMERGEN C  VITAMIN POWDER [Concomitant]
  5. SAMBUCOL ELDEBERRY EXTRACT [Concomitant]

REACTIONS (5)
  - Hyperthyroidism [None]
  - Muscular weakness [None]
  - Heart rate increased [None]
  - Fatigue [None]
  - Product quality issue [None]
